FAERS Safety Report 8408757-X (Version None)
Quarter: 2012Q2

REPORT INFORMATION
  Report Type: 
  Country: None (occurrence: None)
  Receive Date: 20120604
  Receipt Date: 20120528
  Transmission Date: 20120825
  Serious: Yes (Life-Threatening, Hospitalization, Other)
  Sender: FDA-Public Use
  Company Number: PHHY2012JP031111

PATIENT
  Age: 83 Year
  Sex: Female

DRUGS (7)
  1. AMLODIPINE BESYLATE [Concomitant]
  2. RIVASTIGMINE [Suspect]
     Dosage: 9 MG/DAY
     Route: 062
     Dates: start: 20111011, end: 20111019
  3. TANATRIL [Concomitant]
  4. ALLOPURINOL [Concomitant]
  5. TPN [Suspect]
  6. RIVASTIGMINE [Suspect]
     Indication: DEMENTIA ALZHEIMER'S TYPE
     Dosage: 4.5 MG/DAY
     Route: 062
     Dates: start: 20110912, end: 20111010
  7. MAGMITT [Concomitant]

REACTIONS (12)
  - ABDOMINAL TENDERNESS [None]
  - GASTROINTESTINAL INFLAMMATION [None]
  - ILEUS [None]
  - HYPERCALCAEMIA [None]
  - GASTROINTESTINAL OEDEMA [None]
  - PERITONITIS [None]
  - ABDOMINAL PAIN [None]
  - DECREASED APPETITE [None]
  - LARGE INTESTINAL OBSTRUCTION [None]
  - CARDIOVASCULAR DISORDER [None]
  - VOMITING [None]
  - CONSTIPATION [None]
